FAERS Safety Report 10855911 (Version 1)
Quarter: 2015Q1

REPORT INFORMATION
  Report Type: Spontaneous
  Country: US (occurrence: None)
  Receive Date: 20150218
  Receipt Date: 20150218
  Transmission Date: 20150721
  Serious: No
  Sender: FDA-Public Use
  Company Number: None

PATIENT
  Age: 70 Year
  Sex: Female
  Weight: 68.04 kg

DRUGS (1)
  1. OXYBUTYNIN [Suspect]
     Active Substance: OXYBUTYNIN
     Indication: POLLAKIURIA
     Dosage: 1 PILL
     Route: 048

REACTIONS (8)
  - Oral pain [None]
  - Dental care [None]
  - Economic problem [None]
  - Endodontic procedure [None]
  - Dry mouth [None]
  - Dental caries [None]
  - Pain [None]
  - Tooth disorder [None]

NARRATIVE: CASE EVENT DATE: 20150120
